FAERS Safety Report 13102837 (Version 1)
Quarter: 2017Q1

REPORT INFORMATION
  Report Type: Spontaneous
  Country: US (occurrence: US)
  Receive Date: 20170110
  Receipt Date: 20170110
  Transmission Date: 20170428
  Serious: Yes (Hospitalization)
  Sender: FDA-Public Use
  Company Number: US-MAYNE PHARMA-2016MYN000762

PATIENT
  Age: 43 Year
  Sex: Male

DRUGS (16)
  1. QUETIAPINE. [Concomitant]
     Active Substance: QUETIAPINE
  2. CLOZAPINE. [Suspect]
     Active Substance: CLOZAPINE
     Indication: SCHIZOPHRENIA
     Dosage: 12.5 MG, BID
     Route: 065
     Dates: start: 20161019, end: 20161021
  3. OLANZAPINE. [Concomitant]
     Active Substance: OLANZAPINE
  4. CLOZAPINE. [Suspect]
     Active Substance: CLOZAPINE
     Dosage: 25 MG, BID
     Route: 065
     Dates: start: 20161026
  5. BENADRYL [Concomitant]
     Active Substance: DIPHENHYDRAMINE HYDROCHLORIDE
  6. CLOZAPINE. [Suspect]
     Active Substance: CLOZAPINE
     Dosage: 25 MG, BID
     Route: 065
     Dates: start: 20161022
  7. LOVENOX [Concomitant]
     Active Substance: ENOXAPARIN SODIUM
  8. HYDRALAZINE [Concomitant]
     Active Substance: HYDRALAZINE HYDROCHLORIDE
  9. MORPHINE [Concomitant]
     Active Substance: MORPHINE
  10. PANCRELIPASE. [Concomitant]
     Active Substance: PANCRELIPASE
  11. ZOSYN [Concomitant]
     Active Substance: PIPERACILLIN SODIUM\TAZOBACTAM SODIUM
  12. VALPROIC ACID. [Concomitant]
     Active Substance: VALPROIC ACID
  13. PANTOPRAZOLE [Concomitant]
     Active Substance: PANTOPRAZOLE SODIUM
  14. MIRALAX [Concomitant]
     Active Substance: POLYETHYLENE GLYCOL 3350
  15. POTASSIUM CHLORIDE. [Concomitant]
     Active Substance: POTASSIUM CHLORIDE
  16. TAMSULOSIN [Concomitant]
     Active Substance: TAMSULOSIN

REACTIONS (4)
  - Sepsis [Unknown]
  - Aphasia [Unknown]
  - Aggression [Unknown]
  - Agitation [Unknown]

NARRATIVE: CASE EVENT DATE: 2016
